FAERS Safety Report 5570095-0 (Version None)
Quarter: 2007Q4

REPORT INFORMATION
  Report Type: 
  Country: None (occurrence: None)
  Receive Date: 20071220
  Receipt Date: 20071212
  Transmission Date: 20080405
  Serious: Yes (Hospitalization)
  Sender: FDA-Public Use
  Company Number: JP-PFIZER INC-2007101754

PATIENT
  Age: 63 Year
  Sex: Male

DRUGS (6)
  1. NORVASC [Suspect]
     Dosage: DAILY DOSE:20MG
     Route: 048
  2. OLMETEC [Suspect]
     Indication: ESSENTIAL HYPERTENSION
     Dosage: DAILY DOSE:20MG
     Route: 048
  3. MITIGLINIDE [Suspect]
     Dosage: DAILY DOSE:30MG
     Route: 048
  4. MELBIN [Suspect]
     Dosage: DAILY DOSE:500MG
     Route: 048
  5. ALLOPURINOL [Suspect]
     Dosage: DAILY DOSE:100MG
     Route: 048
  6. CALBLOCK [Concomitant]
     Dosage: DAILY DOSE:16MG
     Route: 048
     Dates: start: 20060213, end: 20070223

REACTIONS (1)
  - DUODENAL ULCER HAEMORRHAGE [None]
